FAERS Safety Report 6334675-7 (Version None)
Quarter: 2009Q3

REPORT INFORMATION
  Report Type: 
  Country: None (occurrence: None)
  Receive Date: 20090831
  Receipt Date: 20090803
  Transmission Date: 20100115
  Serious: No
  Sender: FDA-Public Use
  Company Number: US-BAYER-200928649NA

PATIENT
  Sex: Male

DRUGS (2)
  1. AVELOX [Suspect]
     Indication: DRUG USE FOR UNKNOWN INDICATION
  2. AVELOX [Suspect]
     Dates: start: 20090301

REACTIONS (1)
  - APHTHOUS STOMATITIS [None]
